FAERS Safety Report 7733568-8 (Version None)
Quarter: 2011Q3

REPORT INFORMATION
  Report Type: 
  Country: None (occurrence: None)
  Receive Date: 20110907
  Receipt Date: 20110825
  Transmission Date: 20111222
  Serious: Yes (Other)
  Sender: FDA-Public Use
  Company Number: CA-ELI_LILLY_AND_COMPANY-CA201108007686

PATIENT
  Sex: Female

DRUGS (13)
  1. ZYPREXA [Suspect]
     Dosage: 15 MG, UNK
  2. ZYPREXA [Suspect]
     Dosage: 1.25 MG, QD
  3. CITALOPRAM [Concomitant]
  4. CLONAZEPAM [Concomitant]
  5. BENZTROPINE MESYLATE [Concomitant]
  6. ZYPREXA [Suspect]
     Dosage: 5 MG, EACH EVENING
  7. RISPERIDONE [Concomitant]
  8. ZYPREXA [Suspect]
     Dosage: 2.5 MG, UNK
  9. SEROQUEL [Concomitant]
  10. ZYPREXA [Suspect]
     Indication: SCHIZOAFFECTIVE DISORDER
     Dosage: 10 MG, EACH EVENING
     Dates: start: 19970619
  11. LORAZEPAM [Concomitant]
  12. ZOPICLONE [Concomitant]
  13. PAXIL [Concomitant]

REACTIONS (11)
  - MUSCULAR WEAKNESS [None]
  - UNRESPONSIVE TO STIMULI [None]
  - DIABETES MELLITUS [None]
  - VISION BLURRED [None]
  - BLOOD TRIGLYCERIDES INCREASED [None]
  - CHEST PAIN [None]
  - HYPOACUSIS [None]
  - JOINT SWELLING [None]
  - PALPITATIONS [None]
  - WEIGHT INCREASED [None]
  - BLOOD CHOLESTEROL INCREASED [None]
